FAERS Safety Report 21335800 (Version 3)
Quarter: 2022Q3

REPORT INFORMATION
  Report Type: Spontaneous
  Country: IT (occurrence: IT)
  Receive Date: 20220915
  Receipt Date: 20220922
  Transmission Date: 20221026
  Serious: Yes (Hospitalization)
  Sender: FDA-Public Use
  Company Number: None

PATIENT
  Age: 58 Year
  Sex: Female

DRUGS (3)
  1. MEKINIST [Suspect]
     Active Substance: TRAMETINIB DIMETHYL SULFOXIDE
     Indication: Superficial spreading melanoma stage III
     Dosage: 2 MG (DAL 21 JUL 2022 AL 29 AUG 2022 DOSAGGIO PIENO: 2MG/DIE DAL 15 SEP 2022 INIZIA DOSAGGIO RIDOTTO
     Route: 048
  2. TAFINLAR [Suspect]
     Active Substance: DABRAFENIB MESYLATE
     Indication: Superficial spreading melanoma stage III
     Dosage: 150 MG, Q12H (DAL 21 JUL 2022 AL 29 AUG 2022 DOSAGGIO PIENO: 300MG/DIE DAL 15 SEP 2022 INIZIA DOSAGG
     Route: 048
     Dates: start: 20220721, end: 20220829
  3. LEVOTHYROXINE SODIUM [Concomitant]
     Active Substance: LEVOTHYROXINE SODIUM
     Indication: Product used for unknown indication
     Dosage: 12,5 MCG AL GIORNO PER 5 GIORNI, SEGUITI DA 25 MCG AL GIORNO PER DUE GIORNI
     Route: 048

REACTIONS (6)
  - Hypertransaminasaemia [Recovering/Resolving]
  - Blood alkaline phosphatase increased [Unknown]
  - Gamma-glutamyltransferase increased [Unknown]
  - Pyrexia [Recovered/Resolved]
  - Asthenia [Unknown]
  - Chromaturia [Unknown]

NARRATIVE: CASE EVENT DATE: 20220830
